FAERS Safety Report 7799569-9 (Version None)
Quarter: 2011Q4

REPORT INFORMATION
  Report Type: 
  Country: None (occurrence: None)
  Receive Date: 20111006
  Receipt Date: 20110923
  Transmission Date: 20120403
  Serious: Yes (Hospitalization)
  Sender: FDA-Public Use
  Company Number: FR-CELGENEUS-056-50794-11092987

PATIENT
  Sex: Female
  Weight: 64 kg

DRUGS (7)
  1. LEVOTHYROXINE SODIUM [Concomitant]
     Dosage: 75 MICROGRAM
     Route: 048
  2. NEXIUM [Concomitant]
     Dosage: 40 MILLIGRAM
     Route: 048
  3. REVLIMID [Suspect]
     Dosage: 5 MILLIGRAM
     Route: 048
     Dates: start: 20110707, end: 20110720
  4. REVLIMID [Suspect]
     Dosage: 5 MILLIGRAM
     Route: 048
     Dates: start: 20110722
  5. SPECIAFOLDINE [Concomitant]
     Dosage: 5 MILLIGRAM
     Route: 048
  6. VIDAZA [Suspect]
     Dosage: 127.5 MILLIGRAM
     Route: 041
     Dates: start: 20110707, end: 20110712
  7. TRAMADOL HCL [Concomitant]
     Route: 048

REACTIONS (2)
  - MOUTH ULCERATION [None]
  - GENERAL PHYSICAL HEALTH DETERIORATION [None]
